FAERS Safety Report 19169500 (Version 1)
Quarter: 2021Q2

REPORT INFORMATION
  Report Type: Spontaneous
  Country: US (occurrence: US)
  Receive Date: 20210422
  Receipt Date: 20210422
  Transmission Date: 20210717
  Serious: No
  Sender: FDA-Public Use
  Company Number: US-DERMIRA, INC.-US-2021DER000014

PATIENT
  Age: 18 Year
  Sex: Female
  Weight: 68.27 kg

DRUGS (2)
  1. QBREXZA [Suspect]
     Active Substance: GLYCOPYRRONIUM TOSYLATE
     Indication: HYPERHIDROSIS
     Dosage: UNK, QD
     Route: 061
     Dates: start: 202101, end: 20210110
  2. NICAPRIN [Concomitant]
     Indication: ACNE
     Dosage: 1 DF, BID
     Route: 048
     Dates: start: 202101

REACTIONS (3)
  - Acne [Unknown]
  - Visual acuity reduced [Not Recovered/Not Resolved]
  - Mydriasis [Not Recovered/Not Resolved]

NARRATIVE: CASE EVENT DATE: 20210111
